FAERS Safety Report 9146134 (Version 2)
Quarter: 2013Q2

REPORT INFORMATION
  Report Type: Report from Study
  Country: US (occurrence: US)
  Receive Date: 20130307
  Receipt Date: 20130626
  Transmission Date: 20140414
  Serious: Yes (Hospitalization, Other)
  Sender: FDA-Public Use
  Company Number: US-ABBOTT-13P-163-1050463-00

PATIENT
  Sex: Female

DRUGS (1)
  1. HUMIRA [Suspect]
     Indication: CROHN^S DISEASE
     Route: 058
     Dates: start: 20121220

REACTIONS (5)
  - Gallbladder disorder [Recovered/Resolved]
  - Gallbladder operation [Unknown]
  - Abdominal pain [Recovered/Resolved]
  - Injection site pain [Unknown]
  - Weight increased [Unknown]
